FAERS Safety Report 17728278 (Version 1)
Quarter: 2020Q2

REPORT INFORMATION
  Report Type: Report from Study
  Country: US (occurrence: US)
  Receive Date: 20200430
  Receipt Date: 20200430
  Transmission Date: 20200714
  Serious: Yes (Other)
  Sender: FDA-Public Use
  Company Number: US-ASTELLAS-2020US014940

PATIENT
  Sex: Male

DRUGS (4)
  1. REGADENOSON [Suspect]
     Active Substance: REGADENOSON
     Indication: CARDIAC STRESS TEST
     Dosage: SINGLE DOSE 0.4 MG/5 ML
     Route: 042
     Dates: start: 2017, end: 2017
  2. REGADENOSON [Suspect]
     Active Substance: REGADENOSON
     Indication: CARDIAC STRESS TEST
     Dosage: SINGLE DOSE 0.4 MG/5 ML
     Route: 042
     Dates: start: 2017, end: 2017
  3. REGADENOSON [Suspect]
     Active Substance: REGADENOSON
     Indication: CARDIAC STRESS TEST
     Dosage: SINGLE DOSE 0.4 MG/5 ML
     Route: 042
     Dates: start: 2017, end: 2017
  4. REGADENOSON [Suspect]
     Active Substance: REGADENOSON
     Indication: CARDIAC STRESS TEST
     Dosage: SINGLE DOSE 0.4 MG/5 ML
     Route: 042
     Dates: start: 2017, end: 2017

REACTIONS (2)
  - Near death experience [Unknown]
  - Asthma [Unknown]

NARRATIVE: CASE EVENT DATE: 2017
